FAERS Safety Report 7472425-1 (Version None)
Quarter: 2011Q2

REPORT INFORMATION
  Report Type: 
  Country: None (occurrence: None)
  Receive Date: 20110511
  Receipt Date: 20110427
  Transmission Date: 20111010
  Serious: Yes (Other)
  Sender: FDA-Public Use
  Company Number: PHHY2011CA31987

PATIENT
  Sex: Female

DRUGS (2)
  1. NEUPOGEN [Concomitant]
  2. CLOZARIL [Suspect]
     Dates: start: 20110223

REACTIONS (7)
  - PYREXIA [None]
  - AGRANULOCYTOSIS [None]
  - MALAISE [None]
  - WHITE BLOOD CELL COUNT DECREASED [None]
  - NEUTROPHIL COUNT DECREASED [None]
  - NEUTROPHIL COUNT INCREASED [None]
  - WHITE BLOOD CELL COUNT INCREASED [None]
